FAERS Safety Report 4611013-9 (Version None)
Quarter: 2005Q1

REPORT INFORMATION
  Report Type: 
  Country: None (occurrence: None)
  Receive Date: 20050316
  Receipt Date: 20050316
  Transmission Date: 20050727
  Serious: Yes (Death)
  Sender: FDA-Public Use
  Company Number: None

PATIENT
  Sex: Female
  Weight: 59 kg

DRUGS (4)
  1. DAUNORUBICIN HCL [Suspect]
     Dates: start: 20050216, end: 20050223
  2. ELSPAR [Suspect]
     Dates: start: 20050209, end: 20050223
  3. PREDNISONE [Suspect]
     Dates: start: 20050208, end: 20050224
  4. VINCRISTINE SULFATE [Suspect]
     Dates: start: 20050208, end: 20050223

REACTIONS (13)
  - ABDOMINAL DISTENSION [None]
  - ABDOMINAL PAIN [None]
  - CAECITIS [None]
  - DIALYSIS [None]
  - EMOTIONAL DISTRESS [None]
  - HAEMATOCRIT DECREASED [None]
  - KLEBSIELLA INFECTION [None]
  - MULTI-ORGAN FAILURE [None]
  - PLATELET COUNT DECREASED [None]
  - PNEUMATOSIS [None]
  - RENAL FAILURE ACUTE [None]
  - SEPSIS [None]
  - SHOCK [None]
